FAERS Safety Report 5261815-3 (Version None)
Quarter: 2007Q1

REPORT INFORMATION
  Report Type: 
  Country: None (occurrence: None)
  Receive Date: 20070310
  Receipt Date: 20070228
  Transmission Date: 20070707
  Serious: No
  Sender: FDA-Public Use
  Company Number: 2006UW08321

PATIENT
  Age: 47 Year
  Sex: Male
  Weight: 100 kg

DRUGS (7)
  1. SEROQUEL [Suspect]
     Indication: SCHIZOPHRENIA
     Route: 048
     Dates: start: 20040101, end: 20040601
  2. SEROQUEL [Suspect]
     Indication: DEPRESSION
     Route: 048
     Dates: start: 20040101, end: 20040601
  3. HALDOL [Concomitant]
     Dates: start: 19900101
  4. HALDOL [Concomitant]
     Dates: start: 20040101
  5. RISPERDAL [Concomitant]
     Dates: start: 20010101
  6. THORAZINE [Concomitant]
     Dates: start: 19900101
  7. ZYPREXA [Concomitant]
     Dates: start: 20050101, end: 20060101

REACTIONS (1)
  - DIABETES MELLITUS [None]
